FAERS Safety Report 8334576-9 (Version None)
Quarter: 2012Q2

REPORT INFORMATION
  Report Type: 
  Country: None (occurrence: None)
  Receive Date: 20120503
  Receipt Date: 20110627
  Transmission Date: 20120825
  Serious: Yes (Hospitalization, Other)
  Sender: FDA-Public Use
  Company Number: US-TEVA-2011001734

PATIENT
  Sex: Female
  Weight: 147.55 kg

DRUGS (2)
  1. NUVIGIL [Suspect]
     Route: 048
     Dates: end: 20110508
  2. NUVIGIL [Suspect]
     Indication: SLEEP APNOEA SYNDROME
     Dosage: 125 MILLIGRAM;
     Route: 048
     Dates: start: 20110407, end: 20110508

REACTIONS (4)
  - ANXIETY [None]
  - HEADACHE [None]
  - SUICIDAL IDEATION [None]
  - DEPRESSION [None]
